FAERS Safety Report 14418505 (Version 1)
Quarter: 2018Q1

REPORT INFORMATION
  Report Type: Spontaneous
  Country: US (occurrence: US)
  Receive Date: 20180122
  Receipt Date: 20180122
  Transmission Date: 20180509
  Serious: No
  Sender: FDA-Public Use
  Company Number: US-009507513-1801USA001893

PATIENT
  Age: 62 Year
  Sex: Male

DRUGS (3)
  1. PRINIVIL [Concomitant]
     Active Substance: LISINOPRIL
     Indication: HYPERTENSION
     Dosage: 40 MG, ONCE DAILY
     Route: 048
  2. ASMANEX [Suspect]
     Active Substance: MOMETASONE FUROATE
     Indication: ASTHMA
     Dosage: 1 INHALATION DAILY
     Route: 055
     Dates: start: 201710
  3. SINGULAIR [Concomitant]
     Active Substance: MONTELUKAST SODIUM
     Indication: ASTHMA
     Dosage: 10 MG, ONCE DAILY
     Route: 048

REACTIONS (2)
  - Product quality issue [Unknown]
  - Wheezing [Recovering/Resolving]

NARRATIVE: CASE EVENT DATE: 2017
